FAERS Safety Report 4696865-9 (Version None)
Quarter: 2005Q2

REPORT INFORMATION
  Report Type: 
  Country: None (occurrence: None)
  Receive Date: 20050127
  Receipt Date: 20050127
  Transmission Date: 20051028
  Serious: No
  Sender: FDA-Public Use
  Company Number: None

PATIENT
  Sex: Female
  Weight: 39.9165 kg

DRUGS (1)
  1. CARBAMAZEPINE [Suspect]
     Dosage: 1 1/2 TABLETS AM + PM  1 TABLET AT NOON
     Dates: start: 20040914

REACTIONS (2)
  - CONDITION AGGRAVATED [None]
  - CONVULSION [None]
